FAERS Safety Report 23763163 (Version 2)
Quarter: 2024Q2

REPORT INFORMATION
  Report Type: Report from Study
  Country: JP (occurrence: JP)
  Receive Date: 20240419
  Receipt Date: 20240524
  Transmission Date: 20240716
  Serious: Yes (Life-Threatening)
  Sender: FDA-Public Use
  Company Number: JP-MTPC-MTPC2024-0007861

PATIENT
  Age: 82 Year
  Sex: Male
  Weight: 54.9 kg

DRUGS (7)
  1. VADADUSTAT [Suspect]
     Active Substance: VADADUSTAT
     Indication: Nephrogenic anaemia
     Dosage: 300 MILLIGRAM, QD
     Route: 048
     Dates: start: 20211116, end: 20220711
  2. VADADUSTAT [Suspect]
     Active Substance: VADADUSTAT
     Dosage: 450 MILLIGRAM, QD
     Route: 048
     Dates: start: 20220712, end: 20230508
  3. IRBESARTAN\TRICHLORMETHIAZIDE [Concomitant]
     Active Substance: IRBESARTAN\TRICHLORMETHIAZIDE
     Indication: Illness
     Dosage: 1 DOSAGE FORM, QD
     Route: 048
     Dates: end: 20230508
  4. AMLODIPINE BESYLATE [Concomitant]
     Active Substance: AMLODIPINE BESYLATE
     Indication: Illness
     Dosage: 10 MILLIGRAM, QD
     Route: 048
     Dates: end: 20230508
  5. CLOPIDOGREL BISULFATE [Concomitant]
     Active Substance: CLOPIDOGREL BISULFATE
     Indication: Illness
     Dosage: 75 MILLIGRAM, QD
     Route: 048
     Dates: end: 20230508
  6. TOFOGLIFLOZIN [Concomitant]
     Active Substance: TOFOGLIFLOZIN
     Indication: Illness
     Dosage: 20 MILLIGRAM, QD
     Route: 048
     Dates: end: 20230508
  7. DOTINURAD [Concomitant]
     Active Substance: DOTINURAD
     Indication: Illness
     Dosage: 0.5 MILLIGRAM, QD
     Route: 048
     Dates: end: 20230508

REACTIONS (1)
  - Rectal cancer [Unknown]

NARRATIVE: CASE EVENT DATE: 20230506
